FAERS Safety Report 7423320-5 (Version None)
Quarter: 2011Q2

REPORT INFORMATION
  Report Type: 
  Country: None (occurrence: None)
  Receive Date: 20110419
  Receipt Date: 20110415
  Transmission Date: 20111010
  Serious: Yes (Death)
  Sender: FDA-Public Use
  Company Number: US-GENZYME-CLOF-1001567

PATIENT

DRUGS (3)
  1. CAMPATH [Suspect]
     Indication: ACUTE LEUKAEMIA
     Dosage: UNK
     Route: 065
  2. MELPHALAN [Suspect]
     Indication: ACUTE LEUKAEMIA
     Dosage: UNK
     Route: 065
  3. CLOLAR [Suspect]
     Indication: ACUTE LEUKAEMIA
     Dosage: UNK
     Route: 065

REACTIONS (1)
  - PULSELESS ELECTRICAL ACTIVITY [None]
